FAERS Safety Report 19234331 (Version 1)
Quarter: 2021Q2

REPORT INFORMATION
  Report Type: Spontaneous
  Country: US (occurrence: US)
  Receive Date: 20210508
  Receipt Date: 20210508
  Transmission Date: 20210717
  Serious: Yes (Other)
  Sender: FDA-Public Use
  Company Number: US-AMGEN-USASP2021067674

PATIENT
  Age: 46 Year
  Sex: Female

DRUGS (4)
  1. OMEPRAZOLE. [Concomitant]
     Active Substance: OMEPRAZOLE
     Dosage: 20 MILLIGRAM
  2. HYDROCODONE [Concomitant]
     Active Substance: HYDROCODONE
     Dosage: 7.5?325M
  3. SULFASALAZINE DELAYED?RELEASE [Concomitant]
     Active Substance: SULFASALAZINE
     Dosage: 500 MILLIGRAM
  4. ENBREL [Suspect]
     Active Substance: ETANERCEPT
     Indication: RHEUMATOID ARTHRITIS
     Dosage: 50 MILLIGRAM, QWK
     Route: 058
     Dates: start: 202012

REACTIONS (1)
  - Rheumatoid arthritis [Not Recovered/Not Resolved]

NARRATIVE: CASE EVENT DATE: 20210201
